FAERS Safety Report 20680207 (Version 1)
Quarter: 2022Q2

REPORT INFORMATION
  Report Type: Spontaneous
  Country: MX (occurrence: MX)
  Receive Date: 20220406
  Receipt Date: 20220406
  Transmission Date: 20220721
  Serious: Yes (Other)
  Sender: FDA-Public Use
  Company Number: MX-BRISTOL-MYERS SQUIBB COMPANY-2022-015768

PATIENT
  Age: 90 Year
  Sex: Female

DRUGS (2)
  1. APIXABAN [Suspect]
     Active Substance: APIXABAN
     Indication: COVID-19
     Route: 065
  2. APIXABAN [Suspect]
     Active Substance: APIXABAN
     Indication: Fibrin D dimer increased

REACTIONS (2)
  - COVID-19 pneumonia [Unknown]
  - Off label use [Unknown]
